FAERS Safety Report 10741824 (Version 1)
Quarter: 2015Q1

REPORT INFORMATION
  Report Type: Spontaneous
  Country: US (occurrence: None)
  Receive Date: 20150123
  Receipt Date: 20150123
  Transmission Date: 20150721
  Serious: Yes (Other)
  Sender: FDA-Public Use
  Company Number: None

PATIENT
  Age: 57 Year
  Sex: Male
  Weight: 83.01 kg

DRUGS (1)
  1. LISINOPRIL. [Suspect]
     Active Substance: LISINOPRIL
     Indication: ARTERIOSCLEROSIS CORONARY ARTERY
     Route: 048

REACTIONS (3)
  - Dyspnoea [None]
  - Chest discomfort [None]
  - Nervousness [None]

NARRATIVE: CASE EVENT DATE: 20150102
